FAERS Safety Report 10549420 (Version 1)
Quarter: 2014Q4

REPORT INFORMATION
  Report Type: Report from Study
  Country: None (occurrence: None)
  Receive Date: 20141016
  Receipt Date: 20141016
  Transmission Date: 20150529
  Serious: No
  Sender: FDA-Public Use
  Company Number: CABO-14004578

PATIENT
  Age: 70 Year
  Sex: Male
  Weight: 91.4 kg

DRUGS (1)
  1. COMETRIQ [Suspect]
     Active Substance: CABOZANTINIB S-MALATE
     Indication: BLADDER CANCER
     Route: 048
     Dates: start: 20140630, end: 2014

REACTIONS (2)
  - Malaise [None]
  - Appetite disorder [None]

NARRATIVE: CASE EVENT DATE: 2014
